FAERS Safety Report 5697342-9 (Version None)
Quarter: 2008Q2

REPORT INFORMATION
  Report Type: 
  Country: None (occurrence: None)
  Receive Date: 20080408
  Receipt Date: 20080311
  Transmission Date: 20081010
  Serious: Yes (Death)
  Sender: FDA-Public Use
  Company Number: DE-BAYER-200815802GPV

PATIENT
  Age: 41 Year
  Sex: Male

DRUGS (2)
  1. CIPROFLOXACIN [Suspect]
     Indication: TUBERCULOSIS
  2. MOXIFLOXACIN HCL [Suspect]
     Indication: TUBERCULOSIS

REACTIONS (1)
  - TUBERCULOSIS [None]
